FAERS Safety Report 25192178 (Version 1)
Quarter: 2025Q2

REPORT INFORMATION
  Report Type: Spontaneous
  Country: US (occurrence: None)
  Receive Date: 20250412
  Receipt Date: 20250412
  Transmission Date: 20250717
  Serious: Yes (Hospitalization)
  Sender: FDA-CTU
  Company Number: None

PATIENT
  Sex: Female

DRUGS (9)
  1. KESIMPTA [Suspect]
     Active Substance: OFATUMUMAB
     Indication: Multiple sclerosis
     Route: 058
     Dates: start: 20231109
  2. ALPRAZOLAM [Concomitant]
     Active Substance: ALPRAZOLAM
  3. EFFEXOR [Concomitant]
     Active Substance: VENLAFAXINE HYDROCHLORIDE
  4. HYDROCODONE POW BITARTRA [Concomitant]
  5. OXYCODONE [Concomitant]
     Active Substance: OXYCODONE
  6. PERPHENAZINE [Concomitant]
     Active Substance: PERPHENAZINE
  7. TOPAMAX [Concomitant]
     Active Substance: TOPIRAMATE
  8. TRAZODONE [Concomitant]
     Active Substance: TRAZODONE HYDROCHLORIDE
  9. VESICARE [Concomitant]
     Active Substance: SOLIFENACIN SUCCINATE

REACTIONS (2)
  - Liver abscess [None]
  - Therapy interrupted [None]
